FAERS Safety Report 8449343-5 (Version None)
Quarter: 2012Q2

REPORT INFORMATION
  Report Type: 
  Country: None (occurrence: None)
  Receive Date: 20120619
  Receipt Date: 20120612
  Transmission Date: 20120825
  Serious: Yes (Other)
  Sender: FDA-Public Use
  Company Number: US-PFIZER INC-2012108030

PATIENT
  Sex: Female
  Weight: 113.38 kg

DRUGS (4)
  1. CYMBALTA [Suspect]
     Indication: FIBROMYALGIA
     Dosage: UNK
     Route: 048
  2. CYMBALTA [Suspect]
     Indication: DEPRESSION
  3. NAPROSYN [Concomitant]
     Indication: PAIN
     Dosage: UNK, AS NEEDED
  4. LYRICA [Suspect]
     Indication: FIBROMYALGIA
     Dosage: UNK
     Route: 048
     Dates: start: 20110601, end: 20110701

REACTIONS (16)
  - DISTURBANCE IN ATTENTION [None]
  - TREMOR [None]
  - HISTRIONIC PERSONALITY DISORDER [None]
  - APHASIA [None]
  - BRAIN INJURY [None]
  - CONVULSION [None]
  - BODY TEMPERATURE [None]
  - PERSONALITY DISORDER [None]
  - FEELING ABNORMAL [None]
  - MUSCLE TWITCHING [None]
  - READING DISORDER [None]
  - SOMATISATION DISORDER [None]
  - EMOTIONAL DISORDER [None]
  - GRAND MAL CONVULSION [None]
  - MEMORY IMPAIRMENT [None]
  - TACHYPHRENIA [None]
